FAERS Safety Report 23895417 (Version 1)
Quarter: 2024Q2

REPORT INFORMATION
  Report Type: Spontaneous
  Country: US (occurrence: US)
  Receive Date: 20240524
  Receipt Date: 20240524
  Transmission Date: 20240715
  Serious: Yes (Hospitalization, Other)
  Sender: FDA-Public Use
  Company Number: US-SUN PHARMACEUTICAL INDUSTRIES LTD-2024R1-447281

PATIENT
  Age: 8 Day
  Sex: Female
  Weight: 2.705 kg

DRUGS (2)
  1. SERTRALINE [Suspect]
     Active Substance: SERTRALINE HYDROCHLORIDE
     Indication: Anxiety
     Route: 064
  2. SERTRALINE [Suspect]
     Active Substance: SERTRALINE HYDROCHLORIDE
     Indication: Depression

REACTIONS (5)
  - Brain abscess [Unknown]
  - Streptococcal sepsis [Unknown]
  - Foetal exposure during pregnancy [Unknown]
  - Otorrhoea [Unknown]
  - Meningitis bacterial [Unknown]
